FAERS Safety Report 8437599-4 (Version None)
Quarter: 2012Q2

REPORT INFORMATION
  Report Type: 
  Country: None (occurrence: None)
  Receive Date: 20120614
  Receipt Date: 20120417
  Transmission Date: 20120825
  Serious: No
  Sender: FDA-Public Use
  Company Number: US-AMGEN-USASP2012024146

PATIENT
  Age: 68 Year
  Sex: Female

DRUGS (2)
  1. PROLIA [Suspect]
     Indication: OSTEOPOROSIS POSTMENOPAUSAL
     Dosage: 60 MG, UNK
  2. PAROXETINE [Concomitant]
     Dosage: 1 MG, UNK

REACTIONS (5)
  - UPPER-AIRWAY COUGH SYNDROME [None]
  - OESOPHAGEAL DISORDER [None]
  - OROPHARYNGEAL PAIN [None]
  - RHINALGIA [None]
  - SEASONAL ALLERGY [None]
